FAERS Safety Report 24074523 (Version 1)
Quarter: 2024Q3

REPORT INFORMATION
  Report Type: Spontaneous
  Country: GB (occurrence: GB)
  Receive Date: 20240710
  Receipt Date: 20240710
  Transmission Date: 20241017
  Serious: Yes (Other)
  Sender: GLAXOSMITHKLINE
  Company Number: None

PATIENT

DRUGS (1)
  1. LAMOTRIGINE [Suspect]
     Active Substance: LAMOTRIGINE
     Indication: Epilepsy
     Dosage: UNK UNK, BID (150MG AT NIGHT, 100MG AT MORNING)
     Route: 065
     Dates: start: 20240306

REACTIONS (2)
  - Tooth fracture [Not Recovered/Not Resolved]
  - Crush injury [Unknown]
